FAERS Safety Report 22351294 (Version 4)
Quarter: 2024Q1

REPORT INFORMATION
  Report Type: Spontaneous
  Country: US (occurrence: US)
  Receive Date: 20230522
  Receipt Date: 20240219
  Transmission Date: 20240410
  Serious: No
  Sender: FDA-Public Use
  Company Number: US-Stemline Therapeutics, Inc.-2023ST000606

PATIENT
  Age: 63 Year
  Sex: Female

DRUGS (4)
  1. ORSERDU [Suspect]
     Active Substance: ELACESTRANT
     Indication: Product used for unknown indication
     Dosage: 345MG ONCE A DAY BY MOUTH.
     Route: 048
     Dates: start: 20230402
  2. ORSERDU [Suspect]
     Active Substance: ELACESTRANT
     Dosage: 345MG ONCE A DAY BY MOUTH.
     Route: 048
     Dates: start: 20230402
  3. ORSERDU [Suspect]
     Active Substance: ELACESTRANT
     Dosage: 345MG ONCE A DAY BY MOUTH.
     Route: 048
     Dates: start: 20230402
  4. ORSERDU [Suspect]
     Active Substance: ELACESTRANT
     Dosage: 345MG ONCE A DAY BY MOUTH.
     Route: 048
     Dates: start: 20230402

REACTIONS (9)
  - Dehydration [Recovering/Resolving]
  - Flatulence [Unknown]
  - Selective eating disorder [Not Recovered/Not Resolved]
  - Product use issue [Unknown]
  - Alopecia [Not Recovered/Not Resolved]
  - Arthralgia [Not Recovered/Not Resolved]
  - Abdominal pain [Not Recovered/Not Resolved]
  - Bowel movement irregularity [Not Recovered/Not Resolved]
  - Neoplasm progression [Unknown]

NARRATIVE: CASE EVENT DATE: 20230401
